FAERS Safety Report 4796384-5 (Version None)
Quarter: 2005Q4

REPORT INFORMATION
  Report Type: 
  Country: None (occurrence: None)
  Receive Date: 20051007
  Receipt Date: 20050926
  Transmission Date: 20060501
  Serious: Yes (Disabling)
  Sender: FDA-Public Use
  Company Number: 2005071460

PATIENT
  Age: 55 Year
  Sex: Female

DRUGS (1)
  1. MINOXIDIL [Suspect]
     Indication: ALOPECIA
     Dosage: 1 MG (5%), TOPICAL
     Route: 061
     Dates: start: 20040102, end: 20040604

REACTIONS (2)
  - DERMATITIS CONTACT [None]
  - SKIN TEST POSITIVE [None]
